FAERS Safety Report 16172073 (Version 10)
Quarter: 2020Q3

REPORT INFORMATION
  Report Type: Report from Study
  Country: US (occurrence: US)
  Receive Date: 20190409
  Receipt Date: 20200727
  Transmission Date: 20201102
  Serious: Yes (Hospitalization, Other)
  Sender: FDA-Public Use
  Company Number: US-ACADIA PHARMACEUTICALS INC.-ACA-2019-012439

PATIENT
  Age: 81 Year
  Sex: Male
  Weight: 62 kg

DRUGS (4)
  1. NUPLAZID [Suspect]
     Active Substance: PIMAVANSERIN TARTRATE
     Indication: DELUSION
     Dosage: 34 MG, QD
     Route: 048
     Dates: start: 20190410
  2. NUPLAZID [Suspect]
     Active Substance: PIMAVANSERIN TARTRATE
     Indication: PARKINSON^S DISEASE
     Dosage: UNK
     Route: 048
  3. NUPLAZID [Suspect]
     Active Substance: PIMAVANSERIN TARTRATE
     Indication: HALLUCINATION
     Dosage: 34 MG, QD
     Route: 048
     Dates: start: 20190323, end: 2019
  4. NUPLAZID [Suspect]
     Active Substance: PIMAVANSERIN TARTRATE
     Indication: PARKINSON^S DISEASE PSYCHOSIS
     Dosage: 34 MG, QD
     Route: 048
     Dates: start: 201902, end: 2019

REACTIONS (25)
  - Cystitis [Recovered/Resolved]
  - Herpes zoster [Unknown]
  - Aggression [Unknown]
  - Blood pressure systolic decreased [Unknown]
  - Fatigue [Unknown]
  - Fall [Unknown]
  - Confusional state [Not Recovered/Not Resolved]
  - Skin abrasion [Unknown]
  - Abnormal behaviour [Not Recovered/Not Resolved]
  - Dementia [Unknown]
  - Fall [Unknown]
  - Hallucination [Not Recovered/Not Resolved]
  - Dementia [Unknown]
  - Belligerence [Unknown]
  - Musculoskeletal discomfort [Unknown]
  - Skin laceration [Unknown]
  - Hip fracture [Unknown]
  - Urinary retention [Not Recovered/Not Resolved]
  - Balance disorder [Unknown]
  - Sepsis [Unknown]
  - Cystitis [Unknown]
  - Anal incontinence [Unknown]
  - Rib fracture [Unknown]
  - Speech disorder [Not Recovered/Not Resolved]
  - Somnolence [Unknown]

NARRATIVE: CASE EVENT DATE: 2019
